FAERS Safety Report 7643551-9 (Version None)
Quarter: 2011Q3

REPORT INFORMATION
  Report Type: 
  Country: None (occurrence: None)
  Receive Date: 20110729
  Receipt Date: 20110721
  Transmission Date: 20111222
  Serious: Yes (Hospitalization)
  Sender: FDA-Public Use
  Company Number: US-JNJFOC-20110709683

PATIENT
  Sex: Male

DRUGS (1)
  1. DURAGESIC-100 [Suspect]
     Indication: ARTHRALGIA
     Dosage: 75 MCG; 1;7
     Route: 062
     Dates: start: 20100101

REACTIONS (3)
  - URINARY TRACT INFECTION [None]
  - GROIN ABSCESS [None]
  - KIDNEY INFECTION [None]
